FAERS Safety Report 17149273 (Version 4)
Quarter: 2020Q1

REPORT INFORMATION
  Report Type: Spontaneous
  Country: JP (occurrence: JP)
  Receive Date: 20191213
  Receipt Date: 20200227
  Transmission Date: 20200409
  Serious: Yes (Death, Hospitalization, Other)
  Sender: FDA-Public Use
  Company Number: JP-AMGEN-JPNSP2019206997

PATIENT
  Age: 81 Year
  Sex: Male
  Weight: 46 kg

DRUGS (21)
  1. KYPROLIS [Suspect]
     Active Substance: CARFILZOMIB
     Indication: PLASMA CELL MYELOMA
     Dosage: 30 MG
     Route: 041
     Dates: start: 20180201
  2. DECADRON (DEXAMETHASONE SODIUM PHOSPHATE) [Suspect]
     Active Substance: DEXAMETHASONE SODIUM PHOSPHATE
     Indication: PLASMA CELL MYELOMA
     Dosage: 20 MG
     Route: 065
     Dates: start: 20180201
  3. CELECOX [Concomitant]
     Active Substance: CELECOXIB
     Dosage: 100 MG, Q12H
     Route: 048
     Dates: end: 20191118
  4. REVLIMID [Suspect]
     Active Substance: LENALIDOMIDE
     Dosage: 10 MG
     Route: 065
     Dates: end: 20190917
  5. OXYCODONE [Concomitant]
     Active Substance: OXYCODONE
     Indication: PLASMA CELL MYELOMA
     Dosage: 40 MG, Q8H
     Route: 048
     Dates: end: 20191118
  6. KYPROLIS [Suspect]
     Active Substance: CARFILZOMIB
     Dosage: 40 MG
     Route: 041
     Dates: end: 20190917
  7. REVLIMID [Suspect]
     Active Substance: LENALIDOMIDE
     Indication: PLASMA CELL MYELOMA
     Dosage: 1 DF
     Route: 065
     Dates: start: 20151015
  8. OPALMON [Suspect]
     Active Substance: LIMAPROST
     Indication: PRODUCT USED FOR UNKNOWN INDICATION
     Dosage: 10 MICROGRAM, Q8H
     Route: 048
     Dates: start: 20150205, end: 20191118
  9. RANMARK [Concomitant]
     Active Substance: DENOSUMAB
     Dosage: UNK
     Route: 065
  10. LUNESTA [Concomitant]
     Active Substance: ESZOPICLONE
     Dosage: 1 MG, EVERYDAY
     Route: 048
     Dates: end: 20191118
  11. ZOMETA [Concomitant]
     Active Substance: ZOLEDRONIC ACID
     Dosage: UNK
     Route: 065
  12. REVLIMID [Suspect]
     Active Substance: LENALIDOMIDE
     Dosage: 15 MG
     Route: 065
     Dates: start: 20180201
  13. DECADRON (DEXAMETHASONE SODIUM PHOSPHATE) [Suspect]
     Active Substance: DEXAMETHASONE SODIUM PHOSPHATE
     Dosage: 12 MG
     Route: 065
  14. TAKEPRON [Concomitant]
     Active Substance: LANSOPRAZOLE
     Indication: PROPHYLAXIS
     Dosage: 15 MG, EVERYDAY
     Route: 048
     Dates: end: 20191118
  15. PROMAC D [Concomitant]
     Active Substance: POLAPREZINC
     Dosage: 75 MG, Q12H
     Route: 048
     Dates: end: 20191118
  16. KYPROLIS [Suspect]
     Active Substance: CARFILZOMIB
     Dosage: 40 MG
     Route: 041
  17. ACETAMINOPHEN. [Concomitant]
     Active Substance: ACETAMINOPHEN
     Indication: PLASMA CELL MYELOMA
     Dosage: 0.5 G, Q8H
     Route: 048
     Dates: end: 20191118
  18. KYPROLIS [Suspect]
     Active Substance: CARFILZOMIB
     Dosage: 30 MG
     Route: 041
  19. REVLIMID [Suspect]
     Active Substance: LENALIDOMIDE
     Dosage: 10 MG
     Route: 065
     Dates: start: 20191015, end: 20191015
  20. DENOTAS [Concomitant]
     Active Substance: CALCIUM CARBONATE\CHOLECALCIFEROL\MAGNESIUM CARBONATE
     Indication: PLASMA CELL MYELOMA
     Dosage: 2 DF, EVERYDAY
     Route: 048
     Dates: end: 20191118
  21. DECADRON (DEXAMETHASONE SODIUM PHOSPHATE) [Suspect]
     Active Substance: DEXAMETHASONE SODIUM PHOSPHATE
     Dosage: 8 MG
     Route: 065
     Dates: start: 20190820, end: 20191015

REACTIONS (7)
  - Multiple organ dysfunction syndrome [Fatal]
  - Febrile neutropenia [Fatal]
  - Pleurisy [Recovering/Resolving]
  - Pneumonia [Unknown]
  - Dysgeusia [Recovering/Resolving]
  - Sepsis [Fatal]
  - Anaemia [Recovered/Resolved]

NARRATIVE: CASE EVENT DATE: 20180301
